FAERS Safety Report 8345329-X (Version None)
Quarter: 2012Q2

REPORT INFORMATION
  Report Type: 
  Country: None (occurrence: None)
  Receive Date: 20120504
  Receipt Date: 20120502
  Transmission Date: 20120825
  Serious: Yes (Life-Threatening, Hospitalization)
  Sender: FDA-Public Use
  Company Number: 2011SP045082

PATIENT
  Age: 53 Year
  Sex: Male
  Weight: 112 kg

DRUGS (10)
  1. KEPPRA [Concomitant]
  2. FOLIC ACID [Concomitant]
  3. DEXAMETHASONE [Concomitant]
  4. TEMOZOLOMIDE [Suspect]
     Indication: GLIOMA
     Dosage: 160 MG;PO
     Route: 048
     Dates: start: 20110816
  5. CLONAZEPAM [Concomitant]
  6. THIAMINE HCL [Concomitant]
  7. LIPITOR [Concomitant]
  8. LACOSAMIDE [Concomitant]
  9. ENOXAPARIN SODIUM [Concomitant]
  10. PANTOPRAZOLE [Concomitant]

REACTIONS (3)
  - PULMONARY EMBOLISM [None]
  - PYREXIA [None]
  - HYPOTENSION [None]
